FAERS Safety Report 16298205 (Version 2)
Quarter: 2019Q3

REPORT INFORMATION
  Report Type: Report from Study
  Country: ZA (occurrence: ZA)
  Receive Date: 20190510
  Receipt Date: 20190722
  Transmission Date: 20191004
  Serious: Yes (Life-Threatening, Hospitalization)
  Sender: FDA-Public Use
  Company Number: ZA-SA-2019SA127817

PATIENT
  Age: 59 Year
  Sex: Female
  Weight: 120 kg

DRUGS (7)
  1. TOUJEO [Suspect]
     Active Substance: INSULIN GLARGINE
     Dosage: BT-10 UNITS
     Route: 065
     Dates: start: 20190218
  2. ECOTRIN [Concomitant]
     Active Substance: ASPIRIN
     Dosage: BB-81 MG
     Route: 065
     Dates: start: 20150101
  3. INSULIN GLULISINE [Suspect]
     Active Substance: INSULIN GLULISINE
     Dosage: BS-20 UNITS, BB-20 UNITS, BL-20 UNITS, BS-15 UNITS, BL-15 UNITS, BB-15 UNITS
     Route: 065
     Dates: start: 20190219
  4. ADCO-SIMVASTATIN [Concomitant]
     Active Substance: SIMVASTATIN
     Dosage: AS-10 MG
     Route: 065
     Dates: start: 20150101
  5. IVEDAL [Concomitant]
     Active Substance: ZOLPIDEM TARTRATE
     Dosage: BT-10 MG
     Route: 065
     Dates: start: 20160101
  6. OMEZ [OMEPRAZOLE] [Concomitant]
     Active Substance: OMEPRAZOLE
     Dosage: BB-20 MG
     Route: 065
     Dates: start: 20160101
  7. TREPILINE [AMITRIPTYLINE] [Concomitant]
     Active Substance: AMITRIPTYLINE
     Dosage: BT-10 MG
     Route: 065
     Dates: start: 20160101

REACTIONS (5)
  - Asthma [Not Recovered/Not Resolved]
  - Chest pain [Not Recovered/Not Resolved]
  - Influenza [Not Recovered/Not Resolved]
  - Glycosylated haemoglobin increased [Unknown]
  - Asthma [Unknown]

NARRATIVE: CASE EVENT DATE: 20190507
